FAERS Safety Report 9964321 (Version 3)
Quarter: 2014Q1

REPORT INFORMATION
  Report Type: Spontaneous
  Country: US (occurrence: US)
  Receive Date: 20140305
  Receipt Date: 20140324
  Transmission Date: 20141002
  Serious: Yes (Hospitalization)
  Sender: FDA-Public Use
  Company Number: US-GLAXOSMITHKLINE-A1063213A

PATIENT
  Age: 82 Year
  Sex: Male

DRUGS (1)
  1. AVODART [Suspect]
     Indication: METABOLIC DISORDER
     Dosage: .5MG UNKNOWN
     Route: 065
     Dates: start: 20060303

REACTIONS (2)
  - Cardiac failure congestive [Unknown]
  - Atrial fibrillation [Unknown]
